FAERS Safety Report 18111660 (Version 9)
Quarter: 2021Q4

REPORT INFORMATION
  Report Type: Report from Study
  Country: US (occurrence: US)
  Receive Date: 20200804
  Receipt Date: 20211201
  Transmission Date: 20220303
  Serious: Yes (Life-Threatening, Hospitalization)
  Sender: FDA-Public Use
  Company Number: US-GILEAD-2020-0488706

PATIENT
  Age: 56 Year
  Sex: Male
  Weight: 107 kg

DRUGS (63)
  1. BREXUCABTAGENE AUTOLEUCEL [Suspect]
     Active Substance: BREXUCABTAGENE AUTOLEUCEL
     Indication: Mantle cell lymphoma
     Dosage: 68
     Route: 042
     Dates: start: 20200720, end: 20200720
  2. CYCLOPHOSPHAMIDE [Suspect]
     Active Substance: CYCLOPHOSPHAMIDE
     Indication: Bone marrow conditioning regimen
     Dosage: 1 DOSAGE FORM QD; 500
     Route: 042
     Dates: start: 20200715, end: 20200717
  3. FLUDARABINE [Suspect]
     Active Substance: FLUDARABINE PHOSPHATE
     Indication: Bone marrow conditioning regimen
     Dosage: 1 DOSAGE FORM QD; 30
     Route: 042
     Dates: start: 20200715, end: 20200717
  4. AMLODIPINE [Concomitant]
     Active Substance: AMLODIPINE BESYLATE
     Dosage: 5,MG,DAILY
     Route: 048
     Dates: start: 19800101
  5. AMLODIPINE [Concomitant]
     Active Substance: AMLODIPINE BESYLATE
     Dosage: 5,MG,DAILY
     Route: 048
     Dates: start: 19800101, end: 20200722
  6. LITHIUM CARBONATE [Concomitant]
     Active Substance: LITHIUM CARBONATE
     Dosage: 300,MG,TWICE DAILY
     Route: 048
     Dates: start: 19800601
  7. LITHIUM CARBONATE [Concomitant]
     Active Substance: LITHIUM CARBONATE
     Dosage: 450.MG,OTHER
     Route: 048
     Dates: start: 20190219
  8. RITALIN [Concomitant]
     Active Substance: METHYLPHENIDATE HYDROCHLORIDE
     Dosage: 20,MG,THREE TIMES DAILY
     Route: 048
     Dates: start: 20130101
  9. TRAZODONE [Concomitant]
     Active Substance: TRAZODONE HYDROCHLORIDE
     Dosage: 100,MG,AS NECESSARY
     Route: 048
     Dates: start: 20170801
  10. SUCRALFATE [Concomitant]
     Active Substance: SUCRALFATE
     Dosage: 1,G,THREE TIMES DAILY
     Route: 048
     Dates: start: 20171107
  11. PRAZOSIN [Concomitant]
     Active Substance: PRAZOSIN
     Dosage: 2,MG,DAILY
     Route: 048
     Dates: start: 20180601
  12. KLONOPIN [Concomitant]
     Active Substance: CLONAZEPAM
     Dosage: 0.5,MG,TWICE DAILY
     Route: 048
     Dates: start: 20190409
  13. KLONOPIN [Concomitant]
     Active Substance: CLONAZEPAM
     Dosage: 1,MG,DAILY
     Route: 048
     Dates: start: 20200729
  14. BENZTROPINE [Concomitant]
     Active Substance: BENZTROPINE
     Dosage: 1,MG,THREE TIMES DAILY
     Route: 048
     Dates: start: 20191125, end: 20200724
  15. ONDANSETRON [Concomitant]
     Active Substance: ONDANSETRON
     Dosage: 4,MG,AS NECESSARY
     Route: 048
     Dates: start: 20191126
  16. CLARITIN [Concomitant]
     Active Substance: LORATADINE
     Dosage: 10,MG,AS NECESSARY
     Route: 048
     Dates: start: 201912
  17. HYDRALAZINE [Concomitant]
     Active Substance: HYDRALAZINE HYDROCHLORIDE
     Dosage: 50,MG,THREE TIMES DAILY
     Route: 048
     Dates: start: 20191205
  18. HYDRALAZINE [Concomitant]
     Active Substance: HYDRALAZINE HYDROCHLORIDE
     Dosage: 50,MG,THREE TIMES DAILY
     Route: 048
     Dates: start: 20191205, end: 20200722
  19. VRAYLAR [Concomitant]
     Active Substance: CARIPRAZINE
     Dosage: 3,MG,DAILY
     Route: 048
     Dates: start: 20200127
  20. LASIX [Concomitant]
     Active Substance: FUROSEMIDE
     Dosage: 20,MG,AS NECESSARY
     Route: 048
     Dates: start: 20200408
  21. FIORICET [Concomitant]
     Active Substance: ACETAMINOPHEN\BUTALBITAL\CAFFEINE
     Dosage: 300,MG,OTHER
     Route: 048
     Dates: start: 20200423
  22. BACLOFEN [Concomitant]
     Active Substance: BACLOFEN
     Dosage: 5,MG,AS NECESSARY
     Route: 048
     Dates: start: 20200506
  23. ACYCLOVIR [Concomitant]
     Active Substance: ACYCLOVIR
     Dosage: 800,MG,TWICE DAILY
     Route: 048
     Dates: start: 20200518
  24. BRIVARACETAM [Concomitant]
     Active Substance: BRIVARACETAM
     Dosage: 100,MG,DAILY
     Route: 048
     Dates: start: 20180819
  25. PROPRANOLOL HYDROCHLORIDE [Concomitant]
     Active Substance: PROPRANOLOL HYDROCHLORIDE
     Dosage: 40,MG,DAILY
     Route: 048
     Dates: start: 20190409
  26. CYMBALTA [Concomitant]
     Active Substance: DULOXETINE HYDROCHLORIDE
     Dosage: 60,MG,TWICE DAILY
     Route: 048
     Dates: start: 20190918
  27. ALLOPURINOL [Concomitant]
     Active Substance: ALLOPURINOL
     Dosage: 300,MG,DAILY
     Route: 048
     Dates: start: 20200629
  28. IMODIUM [Concomitant]
     Active Substance: LOPERAMIDE HYDROCHLORIDE
     Dosage: 16,MG,DAILY
     Route: 048
     Dates: start: 20200715
  29. ZEMURON [Concomitant]
     Active Substance: ROCURONIUM BROMIDE
     Dosage: 50,MG,ONCE
     Route: 042
     Dates: start: 20200716, end: 20200716
  30. NYSTATIN [Concomitant]
     Active Substance: NYSTATIN
     Dosage: 4-6,ML,FOUR TIMES DAILY
     Route: 048
     Dates: start: 20200717, end: 20200719
  31. LOVENOX [Concomitant]
     Active Substance: ENOXAPARIN SODIUM
     Dosage: 40,MG,DAILY
     Route: 058
     Dates: start: 20200719, end: 20200721
  32. LEVAQUIN [Concomitant]
     Active Substance: LEVOFLOXACIN
     Dosage: 500,MG,DAILY
     Route: 048
     Dates: start: 20200720, end: 20200720
  33. LEVAQUIN [Concomitant]
     Active Substance: LEVOFLOXACIN
     Dosage: 500,MG,OTHER
     Route: 042
     Dates: start: 20200729, end: 20200731
  34. CEFEPIME [Concomitant]
     Active Substance: CEFEPIME HYDROCHLORIDE
     Dosage: 2,G,OTHER
     Route: 042
     Dates: start: 20200721, end: 20200727
  35. CEFEPIME [Concomitant]
     Active Substance: CEFEPIME HYDROCHLORIDE
     Dosage: 2,G,OTHER
     Route: 042
     Dates: start: 20200809
  36. TYLENOL [Concomitant]
     Active Substance: ACETAMINOPHEN
     Dosage: 650,MG,ONCE
     Route: 048
     Dates: start: 20200721, end: 20200721
  37. TYLENOL [Concomitant]
     Active Substance: ACETAMINOPHEN
     Dosage: 650,MG,ONCE
     Route: 048
     Dates: start: 20200722, end: 20200722
  38. SODIUM CHLORIDE [Concomitant]
     Active Substance: SODIUM CHLORIDE
     Dosage: 1000,ML,ONCE
     Route: 042
     Dates: start: 20200722, end: 20200722
  39. SODIUM CHLORIDE [Concomitant]
     Active Substance: SODIUM CHLORIDE
     Dosage: 1000,ML,ONCE
     Route: 042
     Dates: start: 20200807, end: 20200807
  40. SODIUM CHLORIDE [Concomitant]
     Active Substance: SODIUM CHLORIDE
     Dosage: 1000,ML,OTHER
     Route: 042
     Dates: start: 20200809, end: 20200809
  41. TOCILIZUMAB [Concomitant]
     Active Substance: TOCILIZUMAB
     Dosage: 800,MG,ONCE
     Route: 042
     Dates: start: 20200722, end: 20200722
  42. TOCILIZUMAB [Concomitant]
     Active Substance: TOCILIZUMAB
     Dosage: 800,MG,ONCE
     Route: 042
     Dates: start: 20200724, end: 20200724
  43. BACTRIM [Concomitant]
     Active Substance: SULFAMETHOXAZOLE\TRIMETHOPRIM
     Dosage: 1,OTHER,DAILY
     Route: 048
     Dates: start: 20200723
  44. DIFLUCAN [Concomitant]
     Active Substance: FLUCONAZOLE
     Dosage: 400,MG,DAILY
     Route: 048
     Dates: start: 20200723
  45. DECADRON [Concomitant]
     Active Substance: DEXAMETHASONE
     Dosage: 10,MG,ONCE
     Route: 042
     Dates: start: 20200725, end: 20200725
  46. DECADRON [Concomitant]
     Active Substance: DEXAMETHASONE
     Dosage: 10,MG,OTHER
     Route: 042
     Dates: start: 20200725, end: 20200728
  47. KEPPRA [Concomitant]
     Active Substance: LEVETIRACETAM
     Dosage: 500,MG,OTHER
     Route: 042
     Dates: start: 20200725, end: 20200730
  48. BACTROBAN [Concomitant]
     Active Substance: MUPIROCIN\MUPIROCIN CALCIUM
     Dosage: 1,G,TWICE DAILY
     Route: 045
     Dates: start: 20200725, end: 20200730
  49. LEVOPHED [Concomitant]
     Active Substance: NOREPINEPHRINE BITARTRATE
     Dosage: 4,MG,OTHER
     Route: 042
     Dates: start: 20200728, end: 20200730
  50. ZYPREXA [Concomitant]
     Active Substance: OLANZAPINE
     Dosage: 5,MG,TWICE DAILY
     Route: 048
     Dates: start: 20200730
  51. DEPACON [Concomitant]
     Active Substance: VALPROATE SODIUM
     Dosage: 500,MG,OTHER
     Route: 042
     Dates: start: 20200730
  52. OFIRMEV [Concomitant]
     Active Substance: ACETAMINOPHEN
     Dosage: 1000,MG,ONCE
     Route: 042
     Dates: start: 20200731, end: 20200731
  53. CALCIUM GLUCONATE [Concomitant]
     Active Substance: CALCIUM GLUCONATE
     Dosage: 4.65,OTHER,DAILY
     Route: 042
     Dates: start: 20200731, end: 20200801
  54. SODIUM CHLORIDE [Concomitant]
     Active Substance: SODIUM CHLORIDE
     Dosage: 1000,ML,OTHER
     Route: 042
     Dates: start: 20200804, end: 20200804
  55. VALPROIC ACID [Concomitant]
     Active Substance: VALPROIC ACID
     Dosage: 500,MG,THREE TIMES DAILY
     Route: 048
     Dates: start: 20200806
  56. FLORINEF ACETATE [Concomitant]
     Active Substance: FLUDROCORTISONE ACETATE
     Dosage: 0.1,MG,DAILY
     Route: 048
     Dates: start: 20200809
  57. ALBUTEROL SULFATE [Concomitant]
     Active Substance: ALBUTEROL SULFATE
     Dosage: 4,OTHER,AS NECESSARY
     Route: 050
     Dates: start: 20201110
  58. VANCOMYCIN [Concomitant]
     Active Substance: VANCOMYCIN
     Dosage: 1500,MG,TWICE DAILY
     Route: 042
     Dates: start: 20201110
  59. ROCEPHIN [Concomitant]
     Active Substance: CEFTRIAXONE SODIUM
     Dosage: 2,G,TWICE DAILY
     Route: 042
     Dates: start: 20201110
  60. LORAZEPAM [Concomitant]
     Active Substance: LORAZEPAM
     Dosage: 1,MG,AS NECESSARY
     Route: 042
     Dates: start: 20201111
  61. MAGNESIUM SULFATE [Concomitant]
     Active Substance: MAGNESIUM SULFATE
     Dosage: 2,G,AS NECESSARY
     Route: 050
     Dates: start: 20201111
  62. DEXAMETHASONE [Concomitant]
     Active Substance: DEXAMETHASONE
     Dosage: 6,MG,DAILY
     Route: 042
     Dates: start: 20201111
  63. LOPERAMIDE HYDROCHLORIDE [Concomitant]
     Active Substance: LOPERAMIDE HYDROCHLORIDE
     Dosage: 2.5 MG, PRN
     Route: 048
     Dates: start: 20200717

REACTIONS (8)
  - Cardiac arrest [Recovered/Resolved]
  - Encephalopathy [Recovered/Resolved with Sequelae]
  - Encephalopathy [Recovered/Resolved]
  - COVID-19 [Recovered/Resolved]
  - Thermal burn [Recovered/Resolved with Sequelae]
  - Respiratory failure [Recovered/Resolved]
  - Pneumonia [Recovered/Resolved]
  - Pneumonia [Recovered/Resolved]

NARRATIVE: CASE EVENT DATE: 20200726
